FAERS Safety Report 7101523-7 (Version None)
Quarter: 2010Q4

REPORT INFORMATION
  Report Type: 
  Country: None (occurrence: None)
  Receive Date: 20101115
  Receipt Date: 20101110
  Transmission Date: 20110411
  Serious: Yes (Life-Threatening, Hospitalization)
  Sender: FDA-Public Use
  Company Number: PHHY2010FR74575

PATIENT
  Age: 80 Year
  Sex: Female

DRUGS (1)
  1. RASILEZ [Suspect]
     Dosage: 300 MG
     Route: 048

REACTIONS (3)
  - ABNORMAL BEHAVIOUR [None]
  - COMA [None]
  - HYPONATRAEMIA [None]
